FAERS Safety Report 8016488-3 (Version None)
Quarter: 2011Q4

REPORT INFORMATION
  Report Type: 
  Country: None (occurrence: None)
  Receive Date: 20111230
  Receipt Date: 20111221
  Transmission Date: 20120403
  Serious: Yes (Hospitalization, Other)
  Sender: FDA-Public Use
  Company Number: US-ABBOTT-11P-163-0886061-00

PATIENT
  Age: 53 Year
  Sex: Female

DRUGS (9)
  1. SAVELLA [Concomitant]
     Indication: ANXIETY
     Dates: start: 20100201
  2. HUMIRA [Suspect]
     Indication: CROHN'S DISEASE
     Dates: start: 20080301, end: 20090301
  3. ELAVIL [Concomitant]
     Indication: INSOMNIA
     Dosage: AT BEDTIME
     Dates: start: 20100120
  4. COMPAZINE [Concomitant]
     Indication: NAUSEA
     Route: 048
     Dates: start: 20080101
  5. DICYCLAMINE [Concomitant]
     Indication: ABDOMINAL PAIN
     Route: 048
     Dates: start: 20080101
  6. VISTARIL [Concomitant]
     Indication: ANXIETY
     Route: 048
     Dates: start: 20100201
  7. HUMIRA [Suspect]
     Dates: start: 20110801
  8. ELAVIL [Concomitant]
     Indication: ANXIETY
  9. LORTAB [Concomitant]
     Indication: PAIN
     Route: 048
     Dates: start: 20110801

REACTIONS (17)
  - VISUAL IMPAIRMENT [None]
  - FALL [None]
  - TREMOR [None]
  - INTESTINAL OBSTRUCTION [None]
  - NAUSEA [None]
  - MALNUTRITION [None]
  - ABDOMINAL PAIN [None]
  - CONSTIPATION [None]
  - ABDOMINAL DISTENSION [None]
  - FAECALOMA [None]
  - PARTIAL SEIZURES [None]
  - UNRESPONSIVE TO STIMULI [None]
  - CIRCULATORY COLLAPSE [None]
  - CONVULSION [None]
  - VOMITING [None]
  - DIZZINESS [None]
  - ASTHENIA [None]
